FAERS Safety Report 9867782 (Version 1)
Quarter: 2014Q1

REPORT INFORMATION
  Report Type: Report from Study
  Country: US (occurrence: US)
  Receive Date: 20140204
  Receipt Date: 20140204
  Transmission Date: 20141002
  Serious: Yes (Other)
  Sender: FDA-Public Use
  Company Number: US-PURDUE-USA-2014-0110790

PATIENT
  Age: 42 Year
  Sex: Female

DRUGS (2)
  1. OXY CR TAB [Suspect]
     Indication: NEURITIS
     Dosage: 20 MG, Q12H
     Route: 048
     Dates: start: 2012, end: 20121106
  2. OXY CR TAB [Suspect]
     Dosage: 20 MG, TID
     Route: 048
     Dates: start: 20121106

REACTIONS (2)
  - Surgery [Unknown]
  - Drug ineffective [Unknown]
